FAERS Safety Report 7600707-9 (Version None)
Quarter: 2011Q3

REPORT INFORMATION
  Report Type: 
  Country: None (occurrence: None)
  Receive Date: 20110711
  Receipt Date: 20110706
  Transmission Date: 20111222
  Serious: Yes (Other)
  Sender: FDA-Public Use
  Company Number: GB-PFIZER INC-2011152438

PATIENT

DRUGS (2)
  1. LYRICA [Suspect]
     Dosage: 25 MG
  2. LYRICA [Suspect]
     Dosage: 50 MG

REACTIONS (2)
  - HALLUCINATION [None]
  - FALL [None]
